FAERS Safety Report 22029498 (Version 1)
Quarter: 2023Q1

REPORT INFORMATION
  Report Type: Spontaneous
  Country: CO (occurrence: CO)
  Receive Date: 20230223
  Receipt Date: 20230223
  Transmission Date: 20230417
  Serious: Yes (Other)
  Sender: FDA-Public Use
  Company Number: CO-AMGEN-COLSP2023030730

PATIENT
  Age: 71 Year
  Sex: Male
  Weight: 67 kg

DRUGS (8)
  1. MVASI [Suspect]
     Active Substance: BEVACIZUMAB-AWWB
     Indication: Adenocarcinoma of colon
     Dosage: 335 MILLIGRAM, Q2WK
     Route: 040
     Dates: start: 20221125
  2. LEUCOVORIN CALCIUM [Concomitant]
     Active Substance: LEUCOVORIN CALCIUM
     Indication: Adenocarcinoma of colon
     Dosage: 716 MILLIGRAM, Q2WK
     Route: 040
     Dates: start: 20221125, end: 20230121
  3. FLUOROURACIL [Concomitant]
     Active Substance: FLUOROURACIL
     Indication: Adenocarcinoma of colon
     Dosage: 716 MILLIGRAM, Q2WK
     Route: 040
     Dates: start: 20221125, end: 20230121
  4. FLUOROURACIL [Concomitant]
     Active Substance: FLUOROURACIL
     Dosage: 4296 MILLIGRAM, QD
     Route: 040
  5. FOSAPREPITANT [Concomitant]
     Active Substance: FOSAPREPITANT
     Indication: Adenocarcinoma of colon
     Dosage: 150 MILLIGRAM, ADMINISTER DURING THE DAYS: 1,2,3,4,5
     Route: 040
     Dates: start: 20221125, end: 20230121
  6. IRINOTECAN [Concomitant]
     Active Substance: IRINOTECAN
     Indication: Adenocarcinoma of colon
     Dosage: 322.2 MILLIGRAM, Q2WK
     Route: 040
     Dates: start: 20221125, end: 20230121
  7. ONDANSETRON [Concomitant]
     Active Substance: ONDANSETRON
     Indication: Adenocarcinoma of colon
     Dosage: 16 MILLIGRAM, Q2WK
     Route: 040
     Dates: start: 20221125, end: 20230121
  8. ATROPINE SULFATE [Concomitant]
     Active Substance: ATROPINE SULFATE
     Indication: Adenocarcinoma of colon
     Dosage: 1 MILLIGRAM PER MILLILITER (1 AMPOULE EVERY 15 DAYS)
     Route: 030
     Dates: start: 20221125, end: 20230121

REACTIONS (5)
  - Adenocarcinoma of colon [Not Recovered/Not Resolved]
  - Neuropathy peripheral [Not Recovered/Not Resolved]
  - Asthenia [Not Recovered/Not Resolved]
  - Decreased appetite [Not Recovered/Not Resolved]
  - Blood creatinine increased [Recovering/Resolving]

NARRATIVE: CASE EVENT DATE: 20230122
